FAERS Safety Report 4339988-6 (Version None)
Quarter: 2004Q2

REPORT INFORMATION
  Report Type: 
  Country: None (occurrence: None)
  Receive Date: 20040415
  Receipt Date: 20040415
  Transmission Date: 20050107
  Serious: Yes (Hospitalization)
  Sender: FDA-Public Use
  Company Number: None

PATIENT
  Sex: Male
  Weight: 48.3 kg

DRUGS (4)
  1. CISPLATIN [Suspect]
     Indication: CARCINOMA
     Dosage: 162 MG Q 3 WK IV X 2
     Route: 042
     Dates: start: 20040203
  2. CISPLATIN [Suspect]
     Indication: CARCINOMA
     Dosage: 162 MG Q 3 WK IV X 2
     Route: 042
     Dates: start: 20040302
  3. RADIATION THERAPY [Concomitant]
  4. G-TUBE PLACED [Concomitant]

REACTIONS (3)
  - MALNUTRITION [None]
  - MUCOSAL INFLAMMATION [None]
  - PAIN [None]
